FAERS Safety Report 7595596-5 (Version None)
Quarter: 2011Q3

REPORT INFORMATION
  Report Type: 
  Country: None (occurrence: None)
  Receive Date: 20110707
  Receipt Date: 20110615
  Transmission Date: 20111222
  Serious: Yes (Hospitalization)
  Sender: FDA-Public Use
  Company Number: US-GLAXOSMITHKLINE-B0697505A

PATIENT
  Age: 77 Year
  Sex: Female
  Weight: 81.8 kg

DRUGS (2)
  1. AVANDIA [Suspect]
     Indication: DIABETES MELLITUS
     Dosage: 4MG PER DAY
     Route: 048
     Dates: start: 20050203, end: 20050614
  2. AVANDARYL [Suspect]
     Indication: DIABETES MELLITUS
     Dates: start: 20060101, end: 20070101

REACTIONS (5)
  - CHEST DISCOMFORT [None]
  - CARDIAC FAILURE CONGESTIVE [None]
  - ATRIAL FIBRILLATION [None]
  - PALPITATIONS [None]
  - WEIGHT INCREASED [None]
